FAERS Safety Report 4763666-2 (Version None)
Quarter: 2005Q3

REPORT INFORMATION
  Report Type: 
  Country: None (occurrence: None)
  Receive Date: 20050902
  Receipt Date: 20050124
  Transmission Date: 20060218
  Serious: Yes (Other)
  Sender: FDA-Public Use
  Company Number: 2005018719

PATIENT
  Age: 53 Year
  Sex: Male
  Weight: 97.5234 kg

DRUGS (4)
  1. CAVERJECT [Suspect]
     Indication: ERECTILE DYSFUNCTION
     Dosage: 15 MG (15 MG, SINGLE DOSE), INTRACAVERNOSA
     Route: 017
     Dates: start: 20050121
  2. HYDROCODONE [Concomitant]
  3. ESCITALOPRAM OXALATE [Concomitant]
  4. ANTIBIOTICS [Concomitant]

REACTIONS (2)
  - DRUG INEFFECTIVE [None]
  - PAINFUL ERECTION [None]
